FAERS Safety Report 22795093 (Version 4)
Quarter: 2025Q3

REPORT INFORMATION
  Report Type: Report from Study
  Country: US (occurrence: US)
  Receive Date: 20230807
  Receipt Date: 20250929
  Transmission Date: 20251020
  Serious: Yes (Hospitalization, Other)
  Sender: SANOFI AVENTIS
  Company Number: US-SA-SAC20230804000163

PATIENT
  Age: 15 Year
  Sex: Male

DRUGS (6)
  1. EFTRENONACOG ALFA [Suspect]
     Active Substance: EFTRENONACOG ALFA
     Indication: Factor IX deficiency
     Dosage: 3300 U (2970-3630), QW FOR MILD BLEED
     Route: 042
     Dates: start: 202003
  2. EFTRENONACOG ALFA [Suspect]
     Active Substance: EFTRENONACOG ALFA
     Indication: Factor IX deficiency
     Dosage: 3300 U (2970-3630), QW FOR MILD BLEED
     Route: 042
     Dates: start: 202003
  3. EFTRENONACOG ALFA [Suspect]
     Active Substance: EFTRENONACOG ALFA
     Route: 042
     Dates: start: 202003
  4. EFTRENONACOG ALFA [Suspect]
     Active Substance: EFTRENONACOG ALFA
     Route: 042
     Dates: start: 202003
  5. EFTRENONACOG ALFA [Suspect]
     Active Substance: EFTRENONACOG ALFA
     Route: 042
     Dates: start: 202003
  6. EFTRENONACOG ALFA [Suspect]
     Active Substance: EFTRENONACOG ALFA
     Route: 042
     Dates: start: 202003

REACTIONS (6)
  - Abdominal pain [Unknown]
  - Intra-abdominal haemorrhage [Unknown]
  - Blood urine present [Recovered/Resolved]
  - Drug hypersensitivity [Unknown]
  - Epistaxis [Recovering/Resolving]
  - Drug ineffective [Unknown]

NARRATIVE: CASE EVENT DATE: 20230101
